FAERS Safety Report 19825969 (Version 1)
Quarter: 2021Q3

REPORT INFORMATION
  Report Type: Spontaneous
  Country: US (occurrence: US)
  Receive Date: 20210914
  Receipt Date: 20210914
  Transmission Date: 20211014
  Serious: Yes (Hospitalization)
  Sender: FDA-Public Use
  Company Number: US-STRIDES ARCOLAB LIMITED-2020SP009605

PATIENT
  Age: 7 Year
  Sex: Male

DRUGS (5)
  1. DOBUTAMINE [Concomitant]
     Active Substance: DOBUTAMINE HYDROCHLORIDE
     Indication: GITELMAN^S SYNDROME
     Dosage: UNK
     Route: 065
  2. TACROLIMUS. [Suspect]
     Active Substance: TACROLIMUS
     Indication: HEART TRANSPLANT
     Dosage: UNK
     Route: 065
  3. MILRINONE [Concomitant]
     Active Substance: MILRINONE
     Indication: GITELMAN^S SYNDROME
     Dosage: UNK
     Route: 065
  4. MAGNESIUM OXIDE. [Concomitant]
     Active Substance: MAGNESIUM OXIDE
     Indication: GITELMAN^S SYNDROME
     Dosage: UNK
     Route: 065
  5. MAGNESIUM CHLORIDE. [Concomitant]
     Active Substance: MAGNESIUM CHLORIDE
     Indication: GITELMAN^S SYNDROME
     Dosage: UNK
     Route: 065

REACTIONS (1)
  - Hypomagnesaemia [Unknown]
